FAERS Safety Report 20526205 (Version 9)
Quarter: 2024Q4

REPORT INFORMATION
  Report Type: Report from Study
  Country: JP (occurrence: JP)
  Receive Date: 20220228
  Receipt Date: 20241010
  Transmission Date: 20250115
  Serious: Yes (Other)
  Sender: ROCHE
  Company Number: JP-CHUGAI-2022005303

PATIENT
  Age: 38 Year
  Sex: Female
  Weight: 51 kg

DRUGS (19)
  1. ENSPRYNG [Suspect]
     Active Substance: SATRALIZUMAB-MWGE
     Indication: Neuromyelitis optica spectrum disorder
     Dosage: 120 MILLIGRAM, ONCE/2WEEKS
     Route: 058
     Dates: start: 20210615, end: 20210715
  2. ENSPRYNG [Suspect]
     Active Substance: SATRALIZUMAB-MWGE
     Dosage: 120 MILLIGRAM, ONCE/4WEEKS
     Route: 050
     Dates: start: 20210715, end: 20211214
  3. ENSPRYNG [Suspect]
     Active Substance: SATRALIZUMAB-MWGE
     Dosage: 120 MILLIGRAM, ONCE/5WEEKS
     Route: 050
     Dates: start: 20220111, end: 20221122
  4. ENSPRYNG [Suspect]
     Active Substance: SATRALIZUMAB-MWGE
     Dosage: 120 MILLIGRAM, ADMINISTRATION OF THE DRUG ONCE EVERY FIVE WEEKS AND ONCE EVERY SIX WEEKS ALTERNATELY
     Route: 050
     Dates: start: 20221227, end: 20231116
  5. TACROLIMUS [Concomitant]
     Active Substance: TACROLIMUS
     Indication: Neuromyelitis optica spectrum disorder
     Dosage: UNK
     Route: 065
     Dates: start: 200711, end: 200902
  6. TACROLIMUS [Concomitant]
     Active Substance: TACROLIMUS
     Dosage: UNK
     Route: 065
     Dates: start: 20090218
  7. TACROLIMUS [Concomitant]
     Active Substance: TACROLIMUS
     Dosage: 3MG/DAY
     Route: 065
     Dates: start: 20210615, end: 20210913
  8. TACROLIMUS [Concomitant]
     Active Substance: TACROLIMUS
     Dosage: 2.5MG/DAY
     Route: 065
     Dates: start: 20210914, end: 20211213
  9. TACROLIMUS [Concomitant]
     Active Substance: TACROLIMUS
     Dosage: 2.0MG/DAY
     Route: 065
     Dates: start: 20211214, end: 20220411
  10. TACROLIMUS [Concomitant]
     Active Substance: TACROLIMUS
     Dosage: 1.5MG/DAY
     Route: 065
     Dates: start: 20220412, end: 20230612
  11. TACROLIMUS [Concomitant]
     Active Substance: TACROLIMUS
     Dosage: 1.0MG/DAY
     Route: 065
     Dates: start: 20230613, end: 20231011
  12. TACROLIMUS [Concomitant]
     Active Substance: TACROLIMUS
     Dosage: 0.5MG/DAY
     Route: 065
     Dates: start: 20231012
  13. TOZINAMERAN [Concomitant]
     Active Substance: TOZINAMERAN
     Indication: COVID-19 prophylaxis
     Dosage: UNK
     Route: 065
     Dates: start: 202107
  14. TOZINAMERAN [Concomitant]
     Active Substance: TOZINAMERAN
     Dosage: UNK
     Route: 065
     Dates: start: 202108
  15. TOZINAMERAN [Concomitant]
     Active Substance: TOZINAMERAN
     Dosage: UNK
     Route: 065
     Dates: start: 202203
  16. TOZINAMERAN [Concomitant]
     Active Substance: TOZINAMERAN
     Dosage: UNK
     Route: 065
     Dates: start: 202208
  17. TOZINAMERAN [Concomitant]
     Active Substance: TOZINAMERAN
     Dosage: UNK
     Route: 065
     Dates: start: 202301
  18. PREGABALIN [Concomitant]
     Active Substance: PREGABALIN
     Dosage: 25 MILLIGRAM/DAY
     Route: 065
  19. PREGABALIN [Concomitant]
     Active Substance: PREGABALIN
     Dosage: 25 MILLIGRAM/DAY
     Route: 065

REACTIONS (3)
  - Mastitis [Recovered/Resolved]
  - Breast abscess [Recovered/Resolved]
  - Corynebacterium infection [Unknown]

NARRATIVE: CASE EVENT DATE: 20211114
